FAERS Safety Report 7631295-9 (Version None)
Quarter: 2011Q3

REPORT INFORMATION
  Report Type: 
  Country: None (occurrence: None)
  Receive Date: 20110725
  Receipt Date: 20110713
  Transmission Date: 20111222
  Serious: Yes (Other)
  Sender: FDA-Public Use
  Company Number: BR-US-EMD SERONO, INC.-7063942

PATIENT
  Sex: Female

DRUGS (11)
  1. MEFENAMIC ACID [Concomitant]
  2. TEGRETOL-XR [Concomitant]
  3. LEXOTAN [Concomitant]
  4. FLUOXETINE [Concomitant]
  5. REBIF [Suspect]
     Indication: RELAPSING-REMITTING MULTIPLE SCLEROSIS
     Dates: start: 20081201
  6. CAPTOPRIL [Concomitant]
  7. ATENOLOL [Concomitant]
  8. ANGELIQ [Concomitant]
     Indication: HORMONE THERAPY
  9. OMEPRAZOLE [Concomitant]
  10. PONDERA [Concomitant]
  11. DORFLEX [Concomitant]

REACTIONS (12)
  - INJECTION SITE PRURITUS [None]
  - DEPRESSED MOOD [None]
  - INJECTION SITE ERYTHEMA [None]
  - GAMMA-GLUTAMYLTRANSFERASE INCREASED [None]
  - INJECTION SITE NODULE [None]
  - INTERVERTEBRAL DISC PROTRUSION [None]
  - MEMORY IMPAIRMENT [None]
  - LORDOSIS [None]
  - ASPARTATE AMINOTRANSFERASE INCREASED [None]
  - MUSCLE FATIGUE [None]
  - SERUM FERRITIN ABNORMAL [None]
  - ALANINE AMINOTRANSFERASE INCREASED [None]
